FAERS Safety Report 10375664 (Version 1)
Quarter: 2014Q3

REPORT INFORMATION
  Report Type: Spontaneous
  Country: US (occurrence: None)
  Receive Date: 20140804
  Receipt Date: 20140804
  Transmission Date: 20150326
  Serious: Yes (Life-Threatening, Other)
  Sender: FDA-Public Use
  Company Number: 1713747-2013-99984

PATIENT
  Age: 50 Year
  Sex: Male
  Weight: 51 kg

DRUGS (7)
  1. NATURALYTE [Concomitant]
     Active Substance: ACETIC ACID\SODIUM ACETATE
  2. 0.9% SODIUM CHLORIDE INJECTION [Suspect]
     Active Substance: SODIUM CHLORIDE
  3. FRESENIUS BLOOD LINES [Concomitant]
  4. FRESENIUS DIALYZER [Concomitant]
  5. FRESENIUS HEMODIALYSIS MACHINE [Concomitant]
  6. FRESENIUS NORMAL SALINE [Concomitant]
  7. GRANUFLO [Concomitant]
     Active Substance: ACETIC ACID\SODIUM ACETATE

REACTIONS (3)
  - Haemorrhage [None]
  - Device occlusion [None]
  - Haemodialysis [None]

NARRATIVE: CASE EVENT DATE: 20131228
